FAERS Safety Report 14600247 (Version 1)
Quarter: 2018Q1

REPORT INFORMATION
  Report Type: Spontaneous
  Country: US (occurrence: FR)
  Receive Date: 20180305
  Receipt Date: 20180305
  Transmission Date: 20180509
  Serious: Yes (Death, Other)
  Sender: FDA-Public Use
  Company Number: US-JNJFOC-20180303366

PATIENT
  Age: 70 Year
  Sex: Male
  Weight: 72 kg

DRUGS (10)
  1. RIVAROXABAN [Suspect]
     Active Substance: RIVAROXABAN
     Indication: CEREBROVASCULAR ACCIDENT
     Route: 048
  2. KARDEGIC [Suspect]
     Active Substance: ASPIRIN DL-LYSINE
     Indication: CEREBROVASCULAR ACCIDENT
     Route: 065
  3. SOLIRIS [Suspect]
     Active Substance: ECULIZUMAB
     Indication: BONE MARROW FAILURE
     Route: 065
     Dates: start: 20170607
  4. ODRIK [Concomitant]
     Active Substance: TRANDOLAPRIL
     Route: 065
  5. SOLIRIS [Suspect]
     Active Substance: ECULIZUMAB
     Indication: PAROXYSMAL NOCTURNAL HAEMOGLOBINURIA
     Route: 065
     Dates: start: 20141014, end: 20170607
  6. SOLIRIS [Suspect]
     Active Substance: ECULIZUMAB
     Indication: MYELODYSPLASTIC SYNDROME
     Route: 065
     Dates: start: 20141014, end: 20170607
  7. SOLIRIS [Suspect]
     Active Substance: ECULIZUMAB
     Indication: BONE MARROW FAILURE
     Route: 065
     Dates: start: 20141014, end: 20170607
  8. ORACILLINE [Concomitant]
     Active Substance: PENICILLIN V
     Route: 065
  9. SOLIRIS [Suspect]
     Active Substance: ECULIZUMAB
     Indication: MYELODYSPLASTIC SYNDROME
     Route: 065
     Dates: start: 20170607
  10. SOLIRIS [Suspect]
     Active Substance: ECULIZUMAB
     Indication: PAROXYSMAL NOCTURNAL HAEMOGLOBINURIA
     Route: 065
     Dates: start: 20170607

REACTIONS (4)
  - Cerebral haemorrhage [Fatal]
  - Fall [Fatal]
  - Haemorrhagic stroke [Fatal]
  - Head injury [Fatal]

NARRATIVE: CASE EVENT DATE: 20170617
